FAERS Safety Report 6013841-4 (Version None)
Quarter: 2008Q4

REPORT INFORMATION
  Report Type: 
  Country: None (occurrence: None)
  Receive Date: 20081218
  Receipt Date: 20081218
  Transmission Date: 20090506
  Serious: Yes (Life-Threatening)
  Sender: FDA-Public Use
  Company Number: None

PATIENT
  Sex: Male
  Weight: 97.0698 kg

DRUGS (11)
  1. DEPAKOTE ER [Suspect]
     Indication: BIPOLAR DISORDER
     Dosage: 2500 MG DAILY HS PO
     Route: 048
     Dates: start: 20080528, end: 20080616
  2. BISACODYL [Concomitant]
  3. DOCUSATE CALCUIM [Concomitant]
  4. LEVOTHYROXINE [Concomitant]
  5. ACETAMINOPHEN [Concomitant]
  6. MYLANTA [Concomitant]
  7. ATIVAN [Concomitant]
  8. ZYPREXA [Concomitant]
  9. ARICEPT [Concomitant]
  10. OMEPRAZOLE [Concomitant]
  11. SEROQUEL [Concomitant]

REACTIONS (5)
  - ABDOMINAL PAIN UPPER [None]
  - BACK PAIN [None]
  - BLOOD AMYLASE INCREASED [None]
  - CONSTIPATION [None]
  - LIPASE INCREASED [None]
